FAERS Safety Report 6839463-0 (Version None)
Quarter: 2010Q3

REPORT INFORMATION
  Report Type: 
  Country: None (occurrence: None)
  Receive Date: 20100714
  Receipt Date: 20090917
  Transmission Date: 20110219
  Serious: No
  Sender: FDA-Public Use
  Company Number: A0795317A

PATIENT
  Sex: Male

DRUGS (1)
  1. FLOVENT [Suspect]
     Route: 055

REACTIONS (3)
  - INCREASED UPPER AIRWAY SECRETION [None]
  - PRODUCT QUALITY ISSUE [None]
  - RESPIRATORY TRACT CONGESTION [None]
